FAERS Safety Report 14768357 (Version 2)
Quarter: 2018Q2

REPORT INFORMATION
  Report Type: Spontaneous
  Country: GB (occurrence: GB)
  Receive Date: 20180417
  Receipt Date: 20180607
  Transmission Date: 20180711
  Serious: Yes (Death, Hospitalization)
  Sender: FDA-Public Use
  Company Number: IND-GB-009507513-1804GBR005379

PATIENT
  Age: 84 Year
  Sex: Female

DRUGS (5)
  1. ESOMEPRAZOLE [Concomitant]
     Active Substance: ESOMEPRAZOLE
     Indication: GASTROOESOPHAGEAL REFLUX DISEASE
     Dosage: 40 MG, QD
  2. SIMVASTATIN. [Concomitant]
     Active Substance: SIMVASTATIN
     Dosage: 10 MG, AT NIGHT (QD)
  3. CALCIUM (UNSPECIFIED) [Concomitant]
     Active Substance: CALCIUM
     Indication: OSTEOPOROSIS
     Dosage: UNK, DAILY
  4. ETORICOXIB 30 MG FILM-COATED TABLETS [Suspect]
     Active Substance: ETORICOXIB
     Indication: OSTEOARTHRITIS
     Dosage: 60 MG, UNK
     Route: 048
     Dates: start: 20170926, end: 20171002
  5. AMITRIPTYLINE HYDROCHLORIDE. [Concomitant]
     Active Substance: AMITRIPTYLINE HYDROCHLORIDE
     Indication: RESTLESS LEGS SYNDROME
     Dosage: 20 MG, QD (AT NIGHT)

REACTIONS (1)
  - Hepatic necrosis [Fatal]

NARRATIVE: CASE EVENT DATE: 20170926
